FAERS Safety Report 11214422 (Version 2)
Quarter: 2015Q3

REPORT INFORMATION
  Report Type: Spontaneous
  Country: FR (occurrence: FR)
  Receive Date: 20150624
  Receipt Date: 20150717
  Transmission Date: 20151125
  Serious: Yes (Life-Threatening, Hospitalization)
  Sender: FDA-Public Use
  Company Number: FR-IPSEN BIOPHARMACEUTICALS, INC.-2015-5675

PATIENT
  Age: 14 Year
  Sex: Female

DRUGS (3)
  1. DYSPORT [Suspect]
     Active Substance: ABOBOTULINUMTOXINA
     Indication: SALIVARY GLAND DISORDER
     Dosage: 300 UNITS
     Route: 030
     Dates: start: 20150410, end: 20150410
  2. DYSPORT [Suspect]
     Active Substance: ABOBOTULINUMTOXINA
     Indication: PRODUCT USE ISSUE
  3. EMLA [Concomitant]
     Active Substance: LIDOCAINE\PRILOCAINE
     Indication: ANAESTHESIA
     Dosage: NOT REPORTED
     Route: 065
     Dates: start: 20150410, end: 20150410

REACTIONS (3)
  - Dysphagia [Recovering/Resolving]
  - Condition aggravated [Recovering/Resolving]
  - Pneumonia aspiration [Recovering/Resolving]

NARRATIVE: CASE EVENT DATE: 20150413
